FAERS Safety Report 5008462-6 (Version None)
Quarter: 2006Q2

REPORT INFORMATION
  Report Type: 
  Country: None (occurrence: None)
  Receive Date: 20060522
  Receipt Date: 20060522
  Transmission Date: 20061013
  Serious: Yes (Life-Threatening, Hospitalization)
  Sender: FDA-Public Use
  Company Number: None

PATIENT
  Sex: Female
  Weight: 79.8331 kg

DRUGS (13)
  1. CEFTRIAXONE [Suspect]
     Indication: URINARY TRACT INFECTION
     Dosage: 2 GM X1 IV
     Route: 042
     Dates: start: 20060322
  2. DEFERASIROX [Concomitant]
  3. DEFEROXAMINE MESYLATE [Concomitant]
  4. DILAUDID [Concomitant]
  5. DOCULAX [Concomitant]
  6. FOLATE [Concomitant]
  7. HYDROXYUREA [Concomitant]
  8. METHADONE HCL [Concomitant]
  9. PRILOSEC [Concomitant]
  10. PROPRANOLOL [Concomitant]
  11. SENNA [Concomitant]
  12. SERTRALINE HCL [Concomitant]
  13. TRAZODONE HCL [Concomitant]

REACTIONS (10)
  - ACIDOSIS [None]
  - ANAPHYLACTIC REACTION [None]
  - HEART RATE INCREASED [None]
  - HYPOTENSION [None]
  - INFUSION RELATED REACTION [None]
  - LIVER FUNCTION TEST ABNORMAL [None]
  - MENTAL STATUS CHANGES [None]
  - MYOCARDIAL ISCHAEMIA [None]
  - PANCREATITIS [None]
  - TACHYCARDIA [None]
